FAERS Safety Report 6766732-5 (Version None)
Quarter: 2010Q2

REPORT INFORMATION
  Report Type: 
  Country: None (occurrence: None)
  Receive Date: 20100611
  Receipt Date: 20100607
  Transmission Date: 20101027
  Serious: Yes (Hospitalization, Other)
  Sender: FDA-Public Use
  Company Number: US-ELI_LILLY_AND_COMPANY-US200906005311

PATIENT
  Sex: Female
  Weight: 85.714 kg

DRUGS (14)
  1. BYETTA [Suspect]
     Dosage: UNK, UNK
     Dates: start: 20050101
  2. BYETTA [Suspect]
     Dosage: 5 UG, UNK
     Dates: start: 20060901, end: 20080201
  3. BYETTA [Suspect]
     Dosage: 10 UG, UNK
     Dates: start: 20080201, end: 20080819
  4. PREVACID [Concomitant]
  5. SIMVASTATIN [Concomitant]
     Dosage: 20 MG, DAILY (1/D)
     Route: 048
  6. OMEPRAZOLE [Concomitant]
  7. METFORMIN [Concomitant]
  8. DIOVAN [Concomitant]
  9. JANUVIA [Concomitant]
  10. ALPRAZOLAM [Concomitant]
     Dosage: 1 MG, 3/D
     Route: 048
  11. ALENDRONATE SODIUM [Concomitant]
     Dosage: 70 MG, WEEKLY (1/W)
  12. LISINOPRIL [Concomitant]
     Dosage: 40 MG, DAILY (1/D)
  13. LEVOTHYROXINE SODIUM [Concomitant]
     Dosage: 25 UG, DAILY (1/D)
     Route: 048
  14. AMOXICILLIN [Concomitant]

REACTIONS (8)
  - ABDOMINAL DISTENSION [None]
  - ABDOMINAL PAIN [None]
  - BLADDER CANCER [None]
  - CHOLECYSTITIS [None]
  - CHOLELITHIASIS [None]
  - DYSPEPSIA [None]
  - PANCREATITIS [None]
  - RENAL INJURY [None]
